FAERS Safety Report 14425125 (Version 1)
Quarter: 2018Q1

REPORT INFORMATION
  Report Type: Spontaneous
  Country: FR (occurrence: FR)
  Receive Date: 20180123
  Receipt Date: 20180123
  Transmission Date: 20180509
  Serious: Yes (Hospitalization)
  Sender: FDA-Public Use
  Company Number: FR-SA-2018SA012886

PATIENT
  Age: 83 Year
  Sex: Female

DRUGS (9)
  1. INEXIUM [Concomitant]
     Active Substance: ESOMEPRAZOLE
     Route: 065
  2. TAREG [Concomitant]
     Active Substance: VALSARTAN
     Route: 065
  3. MEMANTINE. [Concomitant]
     Active Substance: MEMANTINE
     Route: 065
  4. LASILIX [Concomitant]
     Active Substance: FUROSEMIDE
     Route: 065
  5. DUOPLAVIN [Concomitant]
     Active Substance: ASPIRIN\CLOPIDOGREL
     Route: 065
  6. NORSET [Concomitant]
     Active Substance: MIRTAZAPINE
     Route: 065
  7. LYRICA [Concomitant]
     Active Substance: PREGABALIN
     Route: 065
  8. RIFINAH [Suspect]
     Active Substance: ISONIAZID\RIFAMPIN
     Indication: LATENT TUBERCULOSIS
     Route: 048
     Dates: start: 20170926
  9. ALDACTONE [Concomitant]
     Active Substance: SPIRONOLACTONE
     Route: 065

REACTIONS (2)
  - Confusional state [Recovered/Resolved]
  - Disturbance in social behaviour [Recovered/Resolved]

NARRATIVE: CASE EVENT DATE: 20170929
